FAERS Safety Report 5415633-3 (Version None)
Quarter: 2007Q3

REPORT INFORMATION
  Report Type: 
  Country: None (occurrence: None)
  Receive Date: 20070815
  Receipt Date: 20070808
  Transmission Date: 20080115
  Serious: Yes (Hospitalization, Other)
  Sender: FDA-Public Use
  Company Number: ES-JNJFOC-20070801763

PATIENT
  Sex: Female

DRUGS (2)
  1. DOXIL [Suspect]
     Dosage: CYCLE 2
     Route: 042
  2. DOXIL [Suspect]
     Indication: BREAST CANCER
     Route: 042

REACTIONS (1)
  - HEPATOTOXICITY [None]
